FAERS Safety Report 8196870-4 (Version None)
Quarter: 2012Q1

REPORT INFORMATION
  Report Type: 
  Country: None (occurrence: None)
  Receive Date: 20120309
  Receipt Date: 20120228
  Transmission Date: 20120608
  Serious: Yes (Hospitalization)
  Sender: FDA-Public Use
  Company Number: GB-BAYER-2012-022825

PATIENT
  Age: 75 Year
  Sex: Male

DRUGS (12)
  1. IRBESARTAN [Concomitant]
  2. METFORMIN HCL [Concomitant]
  3. ACETAMINOPHEN [Concomitant]
  4. NAPROXEN SODIUM [Suspect]
     Indication: PAIN
     Dosage: 500 MG, BID
     Dates: start: 20120213, end: 20120216
  5. AMLODIPINE [Concomitant]
  6. DIAZEPAM [Concomitant]
  7. MS CONTIN [Concomitant]
  8. SIMVASTATIN [Concomitant]
  9. ALLOPURINOL [Concomitant]
  10. CODEINE SULFATE [Concomitant]
  11. ORAMORPH SR [Concomitant]
  12. DOXAZOSIN MESYLATE [Concomitant]

REACTIONS (2)
  - GLOMERULAR FILTRATION RATE DECREASED [None]
  - RENAL FAILURE ACUTE [None]
